FAERS Safety Report 8788816 (Version 3)
Quarter: 2013Q2

REPORT INFORMATION
  Report Type: Report from Study
  Country: JP (occurrence: JP)
  Receive Date: 20120917
  Receipt Date: 20130403
  Transmission Date: 20140414
  Serious: Yes (Hospitalization)
  Sender: FDA-Public Use
  Company Number: JP-009507513-1209JPN004653

PATIENT
  Age: 59 Year
  Sex: Female
  Weight: 52 kg

DRUGS (17)
  1. PEGINTRON [Suspect]
     Indication: CHRONIC HEPATITIS C
     Dosage: 1.5 MICROGRAM PER KILOGRAM, QW
     Route: 058
     Dates: start: 20120510, end: 20120719
  2. REBETOL [Suspect]
     Indication: CHRONIC HEPATITIS C
     Dosage: 400 MG, QD
     Route: 048
     Dates: start: 20120510, end: 20120711
  3. REBETOL [Suspect]
     Dosage: 200  MG, QD
     Route: 048
     Dates: start: 20120712
  4. REBETOL [Suspect]
     Dosage: 200 MG, QOD
     Route: 048
     Dates: start: 20120731, end: 20120809
  5. TELAVIC [Suspect]
     Indication: CHRONIC HEPATITIS C
     Dosage: 2250MG,1 DAY
     Route: 048
     Dates: start: 20120510, end: 20120718
  6. TELAVIC [Suspect]
     Dosage: 1500 MG, 1 DAY
     Route: 048
     Dates: start: 20120719, end: 20120725
  7. FERO-GRADUMET [Concomitant]
     Indication: PROPHYLAXIS
     Dosage: 210 MG, QD
     Route: 048
     Dates: start: 20120405
  8. ZYLORIC [Concomitant]
     Indication: HYPERURICAEMIA
     Dosage: 300 MG, QD
     Route: 048
     Dates: start: 20120514, end: 20120614
  9. ZYLORIC [Concomitant]
     Indication: PROPHYLAXIS
     Dosage: 300 MG, QD
     Route: 048
     Dates: end: 20120725
  10. NAUZELIN [Concomitant]
     Indication: NAUSEA
     Dosage: 30 MG, QD
     Route: 048
     Dates: start: 20120514
  11. NAUZELIN [Concomitant]
     Dosage: DAILY DOSE UNKNOWN
     Route: 048
     Dates: end: 20120802
  12. NEXIUM [Concomitant]
     Indication: PROPHYLAXIS
     Dosage: 20 MG, QD
     Route: 048
     Dates: start: 20120514, end: 20120802
  13. TALION (BEPOTASTINE BESYLATE) [Concomitant]
     Indication: PROPHYLAXIS
     Dosage: DAILY DOSE UNKNOWN
     Route: 048
     Dates: start: 20120517, end: 20120614
  14. TALION (BEPOTASTINE BESYLATE) [Concomitant]
     Dosage: 10 MG, QD
     Route: 048
     Dates: end: 20120731
  15. STRONG RESTAMIN CORTISONE KOWA [Concomitant]
     Dosage: DAILY DOSE UNKNOWN
     Route: 061
     Dates: start: 20120517
  16. ALLELOCK [Concomitant]
     Indication: NAUSEA
     Dosage: 10 MG, QD
     Route: 048
     Dates: start: 20120801
  17. PRIMPERAN [Concomitant]
     Dosage: DAILY DOSE UNKNOWN (FORMULATION POR)
     Route: 048

REACTIONS (3)
  - Pancytopenia [Unknown]
  - Decreased appetite [Unknown]
  - Anaemia [Unknown]
